FAERS Safety Report 8812280 (Version 1)
Quarter: 2012Q4

REPORT INFORMATION
  Report Type: 
  Country: US (occurrence: US)
  Receive Date: 20120927
  Receipt Date: 20120927
  Transmission Date: 20130627
  Serious: Yes (Death, Other)
  Sender: FDA-Public Use
  Company Number: US-ROCHE-1104397

PATIENT
  Sex: Male

DRUGS (4)
  1. AVASTIN [Suspect]
     Indication: MALIGNANT RESPIRATORY TRACT NEOPLASM
     Route: 065
  2. TAXOL [Concomitant]
  3. NAVELBINE [Concomitant]
  4. CARBOPLATIN [Concomitant]

REACTIONS (3)
  - Death [Fatal]
  - Device related infection [Unknown]
  - Wound [Unknown]
